FAERS Safety Report 7968845-9 (Version None)
Quarter: 2011Q4

REPORT INFORMATION
  Report Type: 
  Country: None (occurrence: None)
  Receive Date: 20111209
  Receipt Date: 20111124
  Transmission Date: 20120403
  Serious: Yes (Hospitalization)
  Sender: FDA-Public Use
  Company Number: PHHY2011JP78673

PATIENT
  Sex: Female

DRUGS (7)
  1. PREDNISOLONE [Suspect]
     Dosage: 2 MG, UNK
     Route: 048
     Dates: start: 20061221
  2. RHEUMATREX [Suspect]
     Dosage: 8 MG, UNK
     Route: 048
     Dates: start: 20061229
  3. FOLIC ACID [Concomitant]
     Dosage: 5 MG, UNK
     Route: 048
     Dates: start: 20091229
  4. CRESTOR [Concomitant]
     Dosage: 2.5 MG, UNK
     Route: 048
     Dates: start: 20080812
  5. ALENDRONATE SODIUM [Concomitant]
     Dosage: 35 MG, UNK
     Route: 048
     Dates: start: 20080520
  6. VALSARTAN [Suspect]
     Dosage: 80 MG, UNK
     Route: 048
     Dates: start: 20080226, end: 20090629
  7. ZOLPIDEM [Concomitant]
     Dosage: 5 MG, UNK
     Route: 048

REACTIONS (3)
  - WHITE BLOOD CELL COUNT DECREASED [None]
  - DYSLIPIDAEMIA [None]
  - LYMPHOMA [None]
